FAERS Safety Report 12309912 (Version 3)
Quarter: 2016Q2

REPORT INFORMATION
  Report Type: Report from Study
  Country: FR (occurrence: FR)
  Receive Date: 20160427
  Receipt Date: 20160517
  Transmission Date: 20160815
  Serious: Yes (Death, Other)
  Sender: FDA-Public Use
  Company Number: FR-GLAXOSMITHKLINE-FR2016GSK057738

PATIENT
  Sex: Female
  Weight: 65 kg

DRUGS (12)
  1. ZANAMIVIR [Suspect]
     Active Substance: ZANAMIVIR
     Indication: INFLUENZA
     Dosage: UNK
     Route: 042
     Dates: start: 20160209, end: 20160229
  2. CYMEVAN [Concomitant]
     Active Substance: GANCICLOVIR
  3. TARGOCID [Concomitant]
     Active Substance: TEICOPLANIN
  4. HEPARIN [Concomitant]
     Active Substance: HEPARIN SODIUM
  5. OSELTAMIVIR [Concomitant]
     Active Substance: OSELTAMIVIR
     Indication: INFLUENZA
     Dosage: UNK
     Route: 048
     Dates: start: 2016
  6. ZYVOXID [Concomitant]
     Active Substance: LINEZOLID
     Dosage: 600 MG, BID
  7. VORICONAZOLE. [Concomitant]
     Active Substance: VORICONAZOLE
  8. SOLU-MEDROL [Concomitant]
     Active Substance: METHYLPREDNISOLONE SODIUM SUCCINATE
  9. ADRENALINE [Concomitant]
     Active Substance: EPINEPHRINE
  10. REBETOL [Concomitant]
     Active Substance: RIBAVIRIN
     Dosage: 200 MG, UNK
  11. BACTRIM [Concomitant]
     Active Substance: SULFAMETHOXAZOLE\TRIMETHOPRIM
  12. PERFALGAN [Concomitant]
     Active Substance: ACETAMINOPHEN

REACTIONS (1)
  - Death [Fatal]

NARRATIVE: CASE EVENT DATE: 2016
